FAERS Safety Report 5107797-6 (Version None)
Quarter: 2006Q3

REPORT INFORMATION
  Report Type: 
  Country: None (occurrence: None)
  Receive Date: 20060919
  Receipt Date: 20060803
  Transmission Date: 20061208
  Serious: Yes (Life-Threatening, Hospitalization)
  Sender: FDA-Public Use
  Company Number: PHEH2006US09931

PATIENT
  Age: 18 Year
  Sex: Female

DRUGS (10)
  1. EXJADE [Suspect]
     Dosage: 1000 MG, QD
     Route: 048
     Dates: start: 20060724, end: 20060801
  2. EXJADE [Suspect]
     Route: 048
  3. PENICILLIN [Concomitant]
  4. ASCORBIC ACID [Concomitant]
  5. CLARITIN [Concomitant]
  6. HYDROXYUREA [Concomitant]
  7. AMITRIPTYLINE HCL [Concomitant]
  8. PERCOCET [Concomitant]
  9. MOTRIN [Concomitant]
  10. TRILISATE [Concomitant]

REACTIONS (16)
  - ANAPHYLACTIC REACTION [None]
  - ANGIONEUROTIC OEDEMA [None]
  - DYSPNOEA [None]
  - ERYTHEMA [None]
  - HAEMOGLOBIN DECREASED [None]
  - LARYNGEAL OEDEMA [None]
  - MUCOSAL EROSION [None]
  - NEUTROPHIL COUNT DECREASED [None]
  - PHARYNGEAL OEDEMA [None]
  - PRURITUS [None]
  - RASH PAPULAR [None]
  - RED BLOOD CELL COUNT INCREASED [None]
  - SKIN BURNING SENSATION [None]
  - SWELLING FACE [None]
  - URTICARIA [None]
  - WHITE BLOOD CELL COUNT INCREASED [None]
